FAERS Safety Report 4477035-6 (Version None)
Quarter: 2004Q4

REPORT INFORMATION
  Report Type: 
  Country: None (occurrence: None)
  Receive Date: 20041013
  Receipt Date: 20040924
  Transmission Date: 20050328
  Serious: Yes (Death)
  Sender: FDA-Public Use
  Company Number: CA_040907291

PATIENT
  Age: 45 Year
  Sex: Female

DRUGS (1)
  1. XIGRIS [Suspect]

REACTIONS (1)
  - DEATH [None]
